FAERS Safety Report 19230526 (Version 1)
Quarter: 2021Q2

REPORT INFORMATION
  Report Type: Spontaneous
  Country: CA (occurrence: CA)
  Receive Date: 20210507
  Receipt Date: 20210507
  Transmission Date: 20210717
  Serious: Yes (Death, Life-Threatening, Hospitalization, Other)
  Sender: FDA-Public Use
  Company Number: CA-LUPIN PHARMACEUTICALS INC.-2021-06262

PATIENT
  Age: 24 Year
  Sex: Female

DRUGS (11)
  1. POTASSIUM CHLORIDE. [Suspect]
     Active Substance: POTASSIUM CHLORIDE
     Indication: TOXICITY TO VARIOUS AGENTS
     Dosage: UNK, A BATH OF POTASSIUM 4.0 MM
     Route: 065
  2. BICARBONATE [Suspect]
     Active Substance: SODIUM BICARBONATE
     Indication: METABOLIC ACIDOSIS
     Dosage: UNK, BICARBONATE 40 MM, INFUSION
     Route: 065
  3. CALCIUM [Suspect]
     Active Substance: CALCIUM
     Indication: TOXICITY TO VARIOUS AGENTS
     Dosage: UNK, BATH OF 1.25 MM
     Route: 065
  4. MORPHINE [Concomitant]
     Active Substance: MORPHINE
     Indication: PRODUCT USED FOR UNKNOWN INDICATION
     Dosage: 60 MILLIGRAM
     Route: 048
  5. PARACETAMOL [Suspect]
     Active Substance: ACETAMINOPHEN
     Indication: PRODUCT USED FOR UNKNOWN INDICATION
     Dosage: 50 GRAM
     Route: 048
  6. N?ACETYLCYSTEINE [Suspect]
     Active Substance: ACETYLCYSTEINE
     Indication: TOXICITY TO VARIOUS AGENTS
     Dosage: 60 MILLIGRAM/KILOGRAM, BOLUS OF ACETYLCYSTEINE 60 MG/KG OVER ONE HOUR
     Route: 065
  7. SODIUM [Suspect]
     Active Substance: SODIUM
     Indication: TOXICITY TO VARIOUS AGENTS
     Dosage: UNK, BATH OF 140 MM OF SODIUM
     Route: 065
  8. FOMEPIZOLE. [Suspect]
     Active Substance: FOMEPIZOLE
     Indication: TOXICITY TO VARIOUS AGENTS
     Dosage: 600 MILLIGRAM, QID
     Route: 042
  9. HYPERTONIC SALINE SOLUTION [Suspect]
     Active Substance: SODIUM CHLORIDE
     Indication: BRAIN OEDEMA
     Dosage: UNK
     Route: 065
  10. GABAPENTIN. [Suspect]
     Active Substance: GABAPENTIN
     Indication: PRODUCT USED FOR UNKNOWN INDICATION
     Dosage: 25.5 GRAM
     Route: 048
  11. N?ACETYLCYSTEINE [Suspect]
     Active Substance: ACETYLCYSTEINE
     Dosage: 12 MILLIGRAM/KILOGRAM, INFUSION OF ACETYLCYSTEINE 12 MG/KG/HR.
     Route: 065

REACTIONS (13)
  - Coagulopathy [Fatal]
  - Encephalopathy [Fatal]
  - Ileus [Fatal]
  - Drug ineffective [Fatal]
  - Depressed level of consciousness [Fatal]
  - Cerebral haemorrhage [Fatal]
  - Overdose [Fatal]
  - Lactic acidosis [Fatal]
  - Hepatic failure [Fatal]
  - Diffuse axonal injury [Fatal]
  - Hypoglycaemia [Fatal]
  - Mental status changes [Fatal]
  - Brain oedema [Fatal]
